FAERS Safety Report 9449854 (Version 1)
Quarter: 2013Q3

REPORT INFORMATION
  Report Type: Spontaneous
  Country: FR (occurrence: FR)
  Receive Date: 20130809
  Receipt Date: 20130809
  Transmission Date: 20140515
  Serious: Yes (Other)
  Sender: FDA-Public Use
  Company Number: FR-JNJFOC-20130802318

PATIENT
  Age: 7 Year
  Sex: Female
  Weight: 23.5 kg

DRUGS (5)
  1. REMICADE [Suspect]
     Indication: COLITIS ULCERATIVE
     Dosage: FIRST COURSE
     Route: 042
     Dates: start: 20130605, end: 20130605
  2. REMICADE [Suspect]
     Indication: COLITIS ULCERATIVE
     Dosage: SECOND COURSE
     Route: 042
     Dates: start: 20130625, end: 20130625
  3. METOJECT [Concomitant]
     Indication: COLITIS ULCERATIVE
     Route: 065
     Dates: start: 201110
  4. DIOSMECTITE [Concomitant]
     Indication: DIARRHOEA
     Route: 065
  5. ACETAMINOPHEN [Concomitant]
     Indication: PAIN
     Route: 065

REACTIONS (5)
  - Tachycardia [Recovering/Resolving]
  - Oxygen saturation decreased [Recovering/Resolving]
  - Bronchospasm [Recovering/Resolving]
  - Anaphylactic reaction [Recovering/Resolving]
  - Infusion related reaction [Recovering/Resolving]
